FAERS Safety Report 4485044-6 (Version None)
Quarter: 2004Q3

REPORT INFORMATION
  Report Type: 
  Country: None (occurrence: None)
  Receive Date: 20040921
  Receipt Date: 20031002
  Transmission Date: 20050211
  Serious: Yes (Hospitalization)
  Sender: FDA-Public Use
  Company Number: 163-20785-03070106

PATIENT
  Age: 72 Year
  Sex: Male

DRUGS (13)
  1. THALOMID [Suspect]
     Indication: MULTIPLE MYELOMA
     Dosage: 100 MG, DAILY, ORAL; 400 MG, DAILY, ORAL; 200 MG, DAILY, ORAL; QD, ORAL; 100 MG, QD, PO
     Route: 048
     Dates: start: 20021024, end: 20021028
  2. THALOMID [Suspect]
     Indication: MULTIPLE MYELOMA
     Dosage: 100 MG, DAILY, ORAL; 400 MG, DAILY, ORAL; 200 MG, DAILY, ORAL; QD, ORAL; 100 MG, QD, PO
     Route: 048
     Dates: start: 20021029, end: 20030116
  3. THALOMID [Suspect]
     Indication: MULTIPLE MYELOMA
     Dosage: 100 MG, DAILY, ORAL; 400 MG, DAILY, ORAL; 200 MG, DAILY, ORAL; QD, ORAL; 100 MG, QD, PO
     Route: 048
     Dates: start: 20030222, end: 20030405
  4. THALOMID [Suspect]
     Indication: MULTIPLE MYELOMA
     Dosage: 100 MG, DAILY, ORAL; 400 MG, DAILY, ORAL; 200 MG, DAILY, ORAL; QD, ORAL; 100 MG, QD, PO
     Route: 048
     Dates: start: 20030511, end: 20030706
  5. THALOMID [Suspect]
     Indication: MULTIPLE MYELOMA
     Dosage: 100 MG, DAILY, ORAL; 400 MG, DAILY, ORAL; 200 MG, DAILY, ORAL; QD, ORAL; 100 MG, QD, PO
     Route: 048
     Dates: start: 20030815, end: 20031009
  6. THALOMID [Suspect]
     Indication: MULTIPLE MYELOMA
     Dosage: 100 MG, DAILY, ORAL; 400 MG, DAILY, ORAL; 200 MG, DAILY, ORAL; QD, ORAL; 100 MG, QD, PO
     Route: 048
     Dates: start: 20031014
  7. MELPHALAN (MELPHALAN) [Suspect]
     Indication: MULTIPLE MYELOMA
     Dosage: 252 MG, DAILY, INTRAVENOUS
     Route: 042
     Dates: start: 20030220
  8. COLACE (DOCUSATE SODIUM) [Concomitant]
  9. ZOLOFT [Concomitant]
  10. ACYCLOVIR [Concomitant]
  11. PROCRIT [Concomitant]
  12. AREDIA [Concomitant]
  13. PENTAMIDINE INHALER (PENTAMIDINE) [Concomitant]

REACTIONS (10)
  - ASTHMA [None]
  - COUGH [None]
  - DEEP VEIN THROMBOSIS [None]
  - DIARRHOEA [None]
  - DIZZINESS [None]
  - FEBRILE NEUTROPENIA [None]
  - HAEMATURIA [None]
  - NAUSEA [None]
  - PYREXIA [None]
  - STAPHYLOCOCCAL INFECTION [None]
